FAERS Safety Report 19692642 (Version 1)
Quarter: 2021Q3

REPORT INFORMATION
  Report Type: Spontaneous
  Country: CN (occurrence: CN)
  Receive Date: 20210812
  Receipt Date: 20210812
  Transmission Date: 20211014
  Serious: Yes (Hospitalization)
  Sender: FDA-Public Use
  Company Number: CN-BAYER-2021-192324

PATIENT
  Age: 53 Year
  Sex: Female

DRUGS (2)
  1. GADOVIST [Suspect]
     Active Substance: GADOBUTROL
     Indication: MAGNETIC RESONANCE IMAGING
     Dosage: 7 ML, ONCE, INJECTION RATE 1.5 ML/S
     Dates: start: 20210810, end: 20210810
  2. GADOVIST [Suspect]
     Active Substance: GADOBUTROL
     Indication: CERVIX CARCINOMA

REACTIONS (9)
  - Anal incontinence [Recovered/Resolved]
  - Vomiting [Recovered/Resolved]
  - Fall [Recovered/Resolved]
  - Urinary incontinence [Recovered/Resolved]
  - Depressed level of consciousness [Recovered/Resolved]
  - Unresponsive to stimuli [Recovered/Resolved]
  - Dyspnoea [Recovered/Resolved]
  - Blood pressure immeasurable [Recovered/Resolved]
  - Blood pressure immeasurable [Recovered/Resolved]

NARRATIVE: CASE EVENT DATE: 20210810
